FAERS Safety Report 6371087-4 (Version None)
Quarter: 2009Q3

REPORT INFORMATION
  Report Type: 
  Country: None (occurrence: None)
  Receive Date: 20090923
  Receipt Date: 20090911
  Transmission Date: 20100115
  Serious: Yes (Hospitalization, Other)
  Sender: FDA-Public Use
  Company Number: PHHY2009BR39214

PATIENT
  Sex: Female

DRUGS (4)
  1. DIOVAN TRIPLE [Suspect]
     Indication: BLOOD PRESSURE MANAGEMENT
     Dosage: 160/5/12.5 MG, UNK
     Dates: start: 20090729
  2. FLUOXETINE [Concomitant]
     Indication: DEPRESSION
  3. CLOXAZOLAM [Concomitant]
     Indication: ANXIETY
  4. CLOXAZOLAM [Concomitant]
     Indication: SLEEP DISORDER

REACTIONS (5)
  - AGGRESSION [None]
  - ARRHYTHMIA [None]
  - HEADACHE [None]
  - HYPERTENSION [None]
  - RESTLESSNESS [None]
